FAERS Safety Report 7693167-3 (Version None)
Quarter: 2011Q3

REPORT INFORMATION
  Report Type: 
  Country: None (occurrence: None)
  Receive Date: 20110819
  Receipt Date: 20110817
  Transmission Date: 20111222
  Serious: Yes (Death, Hospitalization)
  Sender: FDA-Public Use
  Company Number: US-BRISTOL-MYERS SQUIBB COMPANY-15915382

PATIENT
  Age: 68 Year
  Sex: Female
  Weight: 64 kg

DRUGS (3)
  1. TAXOL [Suspect]
     Indication: OESOPHAGEAL CARCINOMA
     Dosage: LAST DOSE ON 21JUN11
     Dates: start: 20110524
  2. ERBITUX [Suspect]
     Indication: OESOPHAGEAL CARCINOMA
     Dosage: LAST DOSE ON 21JUN11,DAY 36 OMITTED
     Dates: start: 20110524
  3. CISPLATIN [Suspect]
     Indication: OESOPHAGEAL CARCINOMA
     Dosage: LAST DOSE ON 21JUN11,DAY 36 OMITTED
     Dates: start: 20110524

REACTIONS (3)
  - RENAL FAILURE ACUTE [None]
  - HYPERKALAEMIA [None]
  - GENERAL PHYSICAL HEALTH DETERIORATION [None]
